FAERS Safety Report 16818932 (Version 1)
Quarter: 2019Q3

REPORT INFORMATION
  Report Type: Spontaneous
  Country: US (occurrence: US)
  Receive Date: 20190917
  Receipt Date: 20190917
  Transmission Date: 20191005
  Serious: No
  Sender: FDA-Public Use
  Company Number: US-009507513-1909USA002924

PATIENT
  Sex: Female

DRUGS (1)
  1. JANUMET XR [Suspect]
     Active Substance: METFORMIN HYDROCHLORIDE\SITAGLIPTIN PHOSPHATE
     Dosage: 1 TABLET TWICE A DAY
     Route: 048

REACTIONS (4)
  - Product quality issue [Unknown]
  - Circumstance or information capable of leading to medication error [Unknown]
  - Product physical issue [Unknown]
  - No adverse event [Unknown]
